FAERS Safety Report 6617005-2 (Version None)
Quarter: 2010Q1

REPORT INFORMATION
  Report Type: 
  Country: None (occurrence: None)
  Receive Date: 20100302
  Receipt Date: 20100211
  Transmission Date: 20100710
  Serious: Yes (Hospitalization)
  Sender: FDA-Public Use
  Company Number: 2009-1845

PATIENT
  Sex: Female

DRUGS (1)
  1. SOMATULINE AUTOGEL (LANREOTIDE AUTOGEL) (LANREOTIDE) (LANREOTIDE ACETA [Suspect]
     Indication: ACROMEGALY
     Dosage: (90 MG, 1 IN 28 D),

REACTIONS (1)
  - CIRCULATORY COLLAPSE [None]
